FAERS Safety Report 12619369 (Version 2)
Quarter: 2016Q3

REPORT INFORMATION
  Report Type: Spontaneous
  Country: US (occurrence: US)
  Receive Date: 20160803
  Receipt Date: 20160927
  Transmission Date: 20161109
  Serious: Yes (Other)
  Sender: FDA-Public Use
  Company Number: US-JNJFOC-20160724068

PATIENT
  Age: 57 Year
  Sex: Male
  Weight: 124.74 kg

DRUGS (9)
  1. WARFARIN [Concomitant]
     Active Substance: WARFARIN
     Indication: ANTICOAGULANT THERAPY
     Dosage: 5MG TABLET- 7.5 OR 10 MG
     Route: 048
  2. XARELTO [Suspect]
     Active Substance: RIVAROXABAN
     Indication: PRODUCT USED FOR UNKNOWN INDICATION
     Route: 048
     Dates: start: 2016
  3. LOSARTAN. [Concomitant]
     Active Substance: LOSARTAN
     Route: 048
  4. GLIPIZIDE. [Concomitant]
     Active Substance: GLIPIZIDE
     Dosage: HALF TABLET ONCE A DAY
     Route: 048
  5. CITALOPRAM [Concomitant]
     Active Substance: CITALOPRAM HYDROBROMIDE
     Route: 048
  6. PRAVASTATIN. [Concomitant]
     Active Substance: PRAVASTATIN
     Route: 048
  7. FLUTICASONE [Concomitant]
     Active Substance: FLUTICASONE\FLUTICASONE PROPIONATE
     Route: 045
  8. METFORMIN [Concomitant]
     Active Substance: METFORMIN HYDROCHLORIDE
     Route: 048
  9. CENTRUM SILVER [Concomitant]
     Active Substance: MINERALS\VITAMINS
     Route: 048

REACTIONS (2)
  - Surgical failure [Unknown]
  - Product label issue [Unknown]

NARRATIVE: CASE EVENT DATE: 201606
